FAERS Safety Report 16157275 (Version 1)
Quarter: 2019Q2

REPORT INFORMATION
  Report Type: Spontaneous
  Country: US (occurrence: US)
  Receive Date: 20190403
  Receipt Date: 20190403
  Transmission Date: 20190711
  Serious: Yes (Death)
  Sender: FDA-Public Use
  Company Number: None

PATIENT
  Age: 47 Year
  Sex: Female
  Weight: 49.5 kg

DRUGS (6)
  1. HUMIRA [Suspect]
     Active Substance: ADALIMUMAB
     Indication: FURUNCLE
     Dosage: ?          OTHER FREQUENCY:WEEKLY FOR 4 WEEKS;?
     Route: 058
  2. TYLENOL [Concomitant]
     Active Substance: ACETAMINOPHEN
  3. DAILY VITAMIN [Concomitant]
     Active Substance: VITAMINS
  4. CELEBREX [Concomitant]
     Active Substance: CELECOXIB
  5. POTASSIUM [Concomitant]
     Active Substance: POTASSIUM
  6. ZOFRAN [Concomitant]
     Active Substance: ONDANSETRON HYDROCHLORIDE

REACTIONS (7)
  - Hypophagia [None]
  - Fungal oesophagitis [None]
  - Multiple organ dysfunction syndrome [None]
  - Hepatic failure [None]
  - Weight decreased [None]
  - Haematemesis [None]
  - Fungal skin infection [None]

NARRATIVE: CASE EVENT DATE: 20181001
